FAERS Safety Report 5402560-0 (Version None)
Quarter: 2007Q3

REPORT INFORMATION
  Report Type: 
  Country: None (occurrence: None)
  Receive Date: 20070730
  Receipt Date: 20070730
  Transmission Date: 20080115
  Serious: Yes (Life-Threatening, Hospitalization)
  Sender: FDA-Public Use
  Company Number: None

PATIENT
  Sex: Female
  Weight: 65.7716 kg

DRUGS (2)
  1. LORATADINE [Suspect]
     Indication: HYPERSENSITIVITY
     Dosage: SUGGESTED 1 ST -1 SECOND TIME REG 1ST TIME -1 2ND PO
     Route: 048
     Dates: start: 20020514, end: 20030814
  2. LORATADINE [Suspect]
     Indication: HYPERSENSITIVITY
     Dosage: SUGGESTED 1 ST -1 SECOND TIME REG 1ST TIME -1 2ND PO
     Route: 048
     Dates: start: 20060807, end: 20060807

REACTIONS (5)
  - BLADDER DISORDER [None]
  - CYSTITIS [None]
  - HYPERSENSITIVITY [None]
  - HYPOKALAEMIA [None]
  - PHARYNGEAL OEDEMA [None]
